FAERS Safety Report 6133952-2 (Version None)
Quarter: 2009Q1

REPORT INFORMATION
  Report Type: 
  Country: None (occurrence: None)
  Receive Date: 20090326
  Receipt Date: 20090318
  Transmission Date: 20090719
  Serious: Yes (Death, Other)
  Sender: FDA-Public Use
  Company Number: DE-GENENTECH-279630

PATIENT

DRUGS (8)
  1. MABTHERA [Suspect]
     Indication: B-CELL LYMPHOMA
     Dosage: 375 MG/M2, Q3W
     Route: 065
     Dates: start: 20020101
  2. IFOSFAMIDE [Suspect]
     Indication: B-CELL LYMPHOMA
     Dosage: 1500 MG/M2, DAYS1-5/Q3W
     Route: 065
  3. ETOPOSIDE [Suspect]
     Indication: B-CELL LYMPHOMA
     Dosage: 200 MG/M2, DAYS 1-3/Q3W
     Route: 065
  4. VINCRISTINE [Suspect]
     Indication: B-CELL LYMPHOMA
     Dosage: 1.2 MG/M2, Q3W
     Route: 065
  5. DEXAMETHASONE [Suspect]
     Indication: B-CELL LYMPHOMA
     Dosage: 20 MG/M2, DAYS 1-5/Q3W
     Route: 065
  6. EPIRUBICIN [Suspect]
     Indication: B-CELL LYMPHOMA
     Dosage: 40 MG/M2, DAYS 1-2/Q3W
     Route: 065
  7. CYCLOPHOSPHAMIDE [Suspect]
     Indication: B-CELL LYMPHOMA
     Dosage: 500 MG/M2, DAYS 2-3/Q3W
     Route: 065
  8. CARBOPLATIN [Suspect]
     Indication: B-CELL LYMPHOMA
     Dosage: 150 MG/M2, DAYS 1-3/Q3W
     Route: 065

REACTIONS (1)
  - SEPSIS [None]
